FAERS Safety Report 7914893-4 (Version None)
Quarter: 2011Q4

REPORT INFORMATION
  Report Type: 
  Country: None (occurrence: None)
  Receive Date: 20111115
  Receipt Date: 20111101
  Transmission Date: 20120403
  Serious: Yes (Other)
  Sender: FDA-Public Use
  Company Number: US-CELGENEUS-163-50794-11110476

PATIENT

DRUGS (2)
  1. REVLIMID [Suspect]
     Dosage: 5 MILLIGRAM
     Route: 048
  2. VIDAZA [Suspect]
     Dosage: 75 MILLIGRAM/SQ. METER
     Route: 065

REACTIONS (68)
  - LEFT VENTRICULAR DYSFUNCTION [None]
  - ATRIAL FIBRILLATION [None]
  - BONE MARROW FAILURE [None]
  - URINARY TRACT INFECTION [None]
  - SINUSITIS [None]
  - COUGH [None]
  - VOMITING [None]
  - DRY MOUTH [None]
  - TOOTHACHE [None]
  - ARTHRALGIA [None]
  - HAEMATOMA [None]
  - URINARY RETENTION [None]
  - OEDEMA PERIPHERAL [None]
  - SYNCOPE [None]
  - FUNGAL INFECTION [None]
  - DIARRHOEA [None]
  - DECREASED APPETITE [None]
  - HAEMORRHOIDS [None]
  - DYSPHONIA [None]
  - CONSTIPATION [None]
  - EAR PAIN [None]
  - GINGIVAL PAIN [None]
  - PAIN IN EXTREMITY [None]
  - PRURITUS [None]
  - EXTERNAL EAR INFLAMMATION [None]
  - ATRIOVENTRICULAR BLOCK [None]
  - APHASIA [None]
  - DEEP VEIN THROMBOSIS [None]
  - NEUTROPENIA [None]
  - FEBRILE NEUTROPENIA [None]
  - BLOOD CREATININE ABNORMAL [None]
  - CONFUSIONAL STATE [None]
  - EPISTAXIS [None]
  - HYPOTENSION [None]
  - FLATULENCE [None]
  - MUCOSAL INFLAMMATION [None]
  - NIGHT SWEATS [None]
  - OROPHARYNGEAL PAIN [None]
  - POLLAKIURIA [None]
  - FLUSHING [None]
  - DEPRESSION [None]
  - PNEUMONIA [None]
  - RENAL FAILURE [None]
  - HEADACHE [None]
  - DYSPHAGIA [None]
  - DYSGEUSIA [None]
  - PIGMENTATION DISORDER [None]
  - PLEURAL EFFUSION [None]
  - HYPONATRAEMIA [None]
  - HAEMOPTYSIS [None]
  - THROMBOCYTOPENIA [None]
  - OESOPHAGITIS [None]
  - DYSPNOEA [None]
  - ARTHRITIS [None]
  - FATIGUE [None]
  - RASH [None]
  - DYSARTHRIA [None]
  - GINGIVAL BLEEDING [None]
  - INJECTION SITE REACTION [None]
  - THROMBOSIS IN DEVICE [None]
  - CELLULITIS [None]
  - DIZZINESS [None]
  - INSOMNIA [None]
  - VITREOUS HAEMORRHAGE [None]
  - NAUSEA [None]
  - LYMPHADENITIS [None]
  - BACK PAIN [None]
  - RHINITIS [None]
